FAERS Safety Report 17671213 (Version 2)
Quarter: 2020Q2

REPORT INFORMATION
  Report Type: Spontaneous
  Country: US (occurrence: US)
  Receive Date: 20200415
  Receipt Date: 20200415
  Transmission Date: 20200713
  Serious: Yes (Other)
  Sender: FDA-Public Use
  Company Number: US-PFIZER INC-2020150486

PATIENT
  Age: 81 Year
  Sex: Female

DRUGS (1)
  1. PREMARIN [Suspect]
     Active Substance: ESTROGENS, CONJUGATED
     Dosage: 0.03 MG, 1X/DAY (EVERY MORNING)

REACTIONS (4)
  - Bradycardia [Unknown]
  - Counterfeit product administered [Unknown]
  - Product prescribing error [Unknown]
  - Malaise [Unknown]
